FAERS Safety Report 9018270 (Version 3)
Quarter: 2013Q2

REPORT INFORMATION
  Report Type: Spontaneous
  Country: US (occurrence: US)
  Receive Date: 20130117
  Receipt Date: 20130415
  Transmission Date: 20140414
  Serious: Yes (Death, Hospitalization)
  Sender: FDA-Public Use
  Company Number: US-BAXTER-2013BAX001520

PATIENT
  Age: 71 Year
  Sex: Male

DRUGS (2)
  1. DIANEAL LOW CALCIUM [Suspect]
     Indication: PERITONEAL DIALYSIS
     Route: 033
     Dates: end: 20130304
  2. EXTRANEAL [Suspect]
     Indication: PERITONEAL DIALYSIS
     Route: 033
     Dates: end: 20130304

REACTIONS (5)
  - Death [Fatal]
  - Cerebrovascular accident [Recovering/Resolving]
  - Condition aggravated [Recovering/Resolving]
  - Convulsion [Recovering/Resolving]
  - Syncope [Recovering/Resolving]
